FAERS Safety Report 9598966 (Version 1)
Quarter: 2013Q4

REPORT INFORMATION
  Report Type: Spontaneous
  Country: US (occurrence: US)
  Receive Date: 20131004
  Receipt Date: 20131004
  Transmission Date: 20140711
  Serious: No
  Sender: FDA-Public Use
  Company Number: US-AMGEN-USASP2013026613

PATIENT
  Age: 57 Year
  Sex: Female
  Weight: 132.88 kg

DRUGS (9)
  1. ENBREL [Suspect]
     Indication: PRODUCT USED FOR UNKNOWN INDICATION
     Dosage: 50 MG, QWK
     Route: 058
  2. METHOTREXATE [Concomitant]
     Dosage: 2.5 MG, UNK
  3. SYNTHROID [Concomitant]
     Dosage: 25 MUG, UNK
  4. NABUMETONE [Concomitant]
     Dosage: 500 MG, UNK
  5. VICTOZA [Concomitant]
     Dosage: 18 MG/3ML
  6. MULTIVITAMINS, PLAIN [Concomitant]
     Dosage: UNK
  7. FOLIC ACID [Concomitant]
     Dosage: UNK
  8. LUCENTIS [Concomitant]
     Dosage: 0.5 MG, UNK
  9. LISINOPRIL/HCTZ [Concomitant]
     Dosage: 10-12.5

REACTIONS (1)
  - Drug ineffective [Unknown]
